FAERS Safety Report 8114607 (Version 2)
Quarter: 2017Q2

REPORT INFORMATION
  Report Type: Spontaneous
  Country: US (occurrence: US)
  Receive Date: 20110831
  Receipt Date: 20170413
  Transmission Date: 20170830
  Serious: Yes (Death, Life-Threatening)
  Sender: FDA-Public Use
  Company Number: US-JNJFOC-20110812703

PATIENT
  Sex: Female

DRUGS (2)
  1. DURAGESIC [Suspect]
     Active Substance: FENTANYL
     Indication: BACK DISORDER
     Route: 062
     Dates: end: 2005
  2. COUMADIN [Suspect]
     Active Substance: WARFARIN SODIUM
     Indication: CARDIAC DISORDER
     Route: 065
     Dates: start: 2008

REACTIONS (5)
  - Thrombosis [Fatal]
  - Head injury [Unknown]
  - Cardiac disorder [Unknown]
  - Product quality issue [Unknown]
  - Fall [Unknown]

NARRATIVE: CASE EVENT DATE: 2008
